APPROVED DRUG PRODUCT: ARGATROBAN IN DEXTROSE
Active Ingredient: ARGATROBAN
Strength: 125MG/125ML (1MG/ML)
Dosage Form/Route: SOLUTION;INTRAVENOUS
Application: N201743 | Product #001
Applicant: SANDOZ INC
Approved: May 9, 2011 | RLD: No | RS: No | Type: DISCN